FAERS Safety Report 18658823 (Version 3)
Quarter: 2021Q1

REPORT INFORMATION
  Report Type: Spontaneous
  Country: GB (occurrence: GB)
  Receive Date: 20201224
  Receipt Date: 20210225
  Transmission Date: 20210419
  Serious: Yes (Other)
  Sender: FDA-Public Use
  Company Number: GB-BIOVITRUM-2020GB7893

PATIENT
  Age: 56 Year
  Sex: Male

DRUGS (10)
  1. ORFADIN [Suspect]
     Active Substance: NITISINONE
     Indication: ALKAPTONURIA
     Dates: start: 2012
  2. NAPROXEN. [Concomitant]
     Active Substance: NAPROXEN
     Dates: start: 2015
  3. BECONASE AQ [Concomitant]
     Active Substance: BECLOMETHASONE DIPROPIONATE MONOHYDRATE
     Route: 045
     Dates: start: 2012
  4. COCODAMOL [Concomitant]
     Active Substance: ACETAMINOPHEN\CODEINE PHOSPHATE
     Dosage: 8/500 MG
     Dates: start: 2012
  5. ALENDRONIC ACID [Concomitant]
     Active Substance: ALENDRONIC ACID
  6. MEPRADEC [Concomitant]
     Active Substance: OMEPRAZOLE
  7. DICLOFENAC [Concomitant]
     Active Substance: DICLOFENAC
     Dates: start: 2012
  8. DESLORATE [Concomitant]
  9. DESLOTARADINE [Concomitant]
     Dates: start: 2012
  10. ADCAL D3 [Concomitant]
     Active Substance: CALCIUM CARBONATE\CHOLECALCIFEROL
     Dates: start: 2016

REACTIONS (3)
  - Lenticular opacities [Not Recovered/Not Resolved]
  - Amino acid level increased [Not Recovered/Not Resolved]
  - Cataract [Not Recovered/Not Resolved]

NARRATIVE: CASE EVENT DATE: 2013
